FAERS Safety Report 8976294 (Version 2)
Quarter: 2013Q1

REPORT INFORMATION
  Report Type: Spontaneous
  Country: US (occurrence: US)
  Receive Date: 20121220
  Receipt Date: 20130123
  Transmission Date: 20140127
  Serious: No
  Sender: FDA-Public Use
  Company Number: US-009507513-1212USA005957

PATIENT
  Sex: Female

DRUGS (3)
  1. DULERA [Suspect]
     Indication: ASTHMA PROPHYLAXIS
     Dosage: 2 DF, BID
     Route: 055
     Dates: start: 201204
  2. DULERA [Suspect]
     Indication: ALLERGY PROPHYLAXIS
  3. VENTOLIN HFA [Concomitant]

REACTIONS (6)
  - Wheezing [Recovering/Resolving]
  - Dyspnoea [Recovering/Resolving]
  - Product quality issue [Unknown]
  - Drug dose omission [Unknown]
  - Underdose [Unknown]
  - Overdose [Unknown]
